FAERS Safety Report 5864255-9 (Version None)
Quarter: 2008Q3

REPORT INFORMATION
  Report Type: 
  Country: None (occurrence: None)
  Receive Date: 20080829
  Receipt Date: 20080530
  Transmission Date: 20090109
  Serious: No
  Sender: FDA-Public Use
  Company Number: US-ABBOTT-08P-163-0454284-00

PATIENT
  Age: 68 Year
  Sex: Female

DRUGS (4)
  1. SIMCOR [Suspect]
     Indication: BLOOD CHOLESTEROL INCREASED
     Route: 048
     Dates: start: 20080501
  2. VIVAL PATCH [Concomitant]
     Indication: DRUG USE FOR UNKNOWN INDICATION
     Route: 061
  3. LEVOTHYROXINE SODIUM [Concomitant]
     Indication: DRUG USE FOR UNKNOWN INDICATION
     Route: 048
  4. ZOLPIDEM TARTRATE [Concomitant]
     Indication: INSOMNIA
     Route: 048

REACTIONS (2)
  - DYSPNOEA EXERTIONAL [None]
  - PALPITATIONS [None]
